FAERS Safety Report 8410735-1 (Version None)
Quarter: 2012Q2

REPORT INFORMATION
  Report Type: 
  Country: None (occurrence: None)
  Receive Date: 20120605
  Receipt Date: 20120524
  Transmission Date: 20120825
  Serious: Yes (Hospitalization)
  Sender: FDA-Public Use
  Company Number: CN-JNJFOC-20120519961

PATIENT
  Age: 47 Year
  Sex: Female

DRUGS (4)
  1. ACETAMINOPHEN [Suspect]
     Indication: TOOTHACHE
     Route: 048
  2. METRONIDAZOLE [Suspect]
     Indication: TOOTHACHE
     Route: 048
  3. ACETAMINOPHEN [Suspect]
     Route: 048
  4. AMOXICILLIN [Suspect]
     Indication: TOOTHACHE
     Route: 048

REACTIONS (1)
  - RASH PUSTULAR [None]
